FAERS Safety Report 9295051 (Version 2)
Quarter: 2013Q2

REPORT INFORMATION
  Report Type: Spontaneous
  Country: KR (occurrence: KR)
  Receive Date: 20130517
  Receipt Date: 20130528
  Transmission Date: 20140414
  Serious: Yes (Hospitalization)
  Sender: FDA-Public Use
  Company Number: KR-JNJFOC-20130504248

PATIENT
  Age: 12 Month
  Sex: Male

DRUGS (1)
  1. CHILDREN^S TYLENOL [Suspect]
     Indication: PYREXIA
     Route: 048
     Dates: start: 201304

REACTIONS (3)
  - Idiopathic thrombocytopenic purpura [Recovered/Resolved]
  - Urticaria [Unknown]
  - Skin disorder [Unknown]
